FAERS Safety Report 17801424 (Version 1)
Quarter: 2020Q2

REPORT INFORMATION
  Report Type: Spontaneous
  Country: HR (occurrence: HR)
  Receive Date: 20200519
  Receipt Date: 20200519
  Transmission Date: 20200714
  Serious: Yes (Other)
  Sender: FDA-Public Use
  Company Number: HR-ABBVIE-20K-216-3410081-00

PATIENT
  Age: 76 Year
  Sex: Male

DRUGS (1)
  1. IMBRUVICA [Suspect]
     Active Substance: IBRUTINIB
     Indication: CHRONIC LYMPHOCYTIC LEUKAEMIA
     Route: 048
     Dates: start: 20191121, end: 20200505

REACTIONS (3)
  - Atrial fibrillation [Unknown]
  - Pleural effusion [Unknown]
  - Cardiac failure [Unknown]

NARRATIVE: CASE EVENT DATE: 202005
